FAERS Safety Report 13612657 (Version 1)
Quarter: 2017Q2

REPORT INFORMATION
  Report Type: Spontaneous
  Country: US (occurrence: US)
  Receive Date: 20170605
  Receipt Date: 20170605
  Transmission Date: 20170830
  Serious: Yes (Hospitalization)
  Sender: FDA-Public Use
  Company Number: US-NOVOPROD-547998

PATIENT
  Age: 66 Year
  Sex: Male
  Weight: 108.84 kg

DRUGS (3)
  1. NOVOLOG [Suspect]
     Active Substance: INSULIN ASPART
     Indication: TYPE 1 DIABETES MELLITUS
     Dosage: SLIDING SCALE
     Route: 058
     Dates: start: 2011
  2. LEVEMIR [Suspect]
     Active Substance: INSULIN DETEMIR
     Indication: TYPE 1 DIABETES MELLITUS
     Dosage: 60 U, QD AT BEDTIME
     Route: 058
     Dates: start: 2011
  3. POTASSIUM [Concomitant]
     Active Substance: POTASSIUM
     Indication: PAIN IN EXTREMITY
     Dosage: UNK, BID
     Route: 048

REACTIONS (4)
  - Blood potassium increased [Recovered/Resolved]
  - Blood glucose fluctuation [Recovered/Resolved]
  - Oxygen saturation decreased [Recovered/Resolved]
  - Loss of consciousness [Recovered/Resolved]

NARRATIVE: CASE EVENT DATE: 201702
